FAERS Safety Report 7631972-X (Version None)
Quarter: 2011Q3

REPORT INFORMATION
  Report Type: 
  Country: None (occurrence: None)
  Receive Date: 20110725
  Receipt Date: 20110518
  Transmission Date: 20111222
  Serious: Yes (Other)
  Sender: FDA-Public Use
  Company Number: US-BRISTOL-MYERS SQUIBB COMPANY-15754526

PATIENT
  Age: 74 Year
  Sex: Female
  Weight: 63 kg

DRUGS (13)
  1. URSODIOL [Concomitant]
  2. OMEPRAZOLE [Concomitant]
  3. VITAMIN D [Concomitant]
  4. AMBIEN [Concomitant]
  5. COUMADIN [Suspect]
     Indication: THROMBOSIS
     Dosage: 7.5MG ON TUESDAY, THURSDAY, SATURDAY AND SUNDAY
  6. PLAVIX [Concomitant]
  7. ATENOLOL [Concomitant]
  8. COUMADIN [Suspect]
     Indication: MYOCARDIAL INFARCTION
     Dosage: 7.5MG ON TUESDAY, THURSDAY, SATURDAY AND SUNDAY
  9. CELLCEPT [Concomitant]
  10. CALCIUM CARBONATE [Concomitant]
  11. NITROGLYCERIN [Concomitant]
  12. LIPITOR [Concomitant]
  13. LISINOPRIL [Concomitant]

REACTIONS (1)
  - INTERNATIONAL NORMALISED RATIO FLUCTUATION [None]
